FAERS Safety Report 4956369-2 (Version None)
Quarter: 2006Q1

REPORT INFORMATION
  Report Type: 
  Country: None (occurrence: None)
  Receive Date: 20060329
  Receipt Date: 20060303
  Transmission Date: 20060701
  Serious: Yes (Death, Other)
  Sender: FDA-Public Use
  Company Number: PHEH2006US04014

PATIENT
  Age: 10 Year

DRUGS (1)
  1. FOCALIN [Suspect]
     Indication: ATTENTION DEFICIT/HYPERACTIVITY DISORDER
     Dosage: 20 MG, BID
     Route: 048

REACTIONS (3)
  - CARDIAC DISORDER [None]
  - INCORRECT DOSE ADMINISTERED [None]
  - SUDDEN DEATH [None]
